FAERS Safety Report 4277810-7 (Version None)
Quarter: 2004Q1

REPORT INFORMATION
  Report Type: 
  Country: None (occurrence: None)
  Receive Date: 20040122
  Receipt Date: 20040122
  Transmission Date: 20041129
  Serious: Yes (Hospitalization)
  Sender: FDA-Public Use
  Company Number: None

PATIENT
  Sex: Female
  Weight: 86.1834 kg

DRUGS (4)
  1. WINRHO [Suspect]
     Indication: IDIOPATHIC THROMBOCYTOPENIC PURPURA
     Dosage: 4200 MCG ONCE INTRAVENOUS
     Route: 042
     Dates: start: 20031209, end: 20031209
  2. DANAZOL [Concomitant]
  3. PREDNISONE [Concomitant]
  4. LASIX [Concomitant]

REACTIONS (3)
  - BACK PAIN [None]
  - CHILLS [None]
  - DYSPNOEA [None]
